FAERS Safety Report 5515264-0 (Version None)
Quarter: 2007Q4

REPORT INFORMATION
  Report Type: 
  Country: None (occurrence: None)
  Receive Date: 20071113
  Receipt Date: 20071107
  Transmission Date: 20080405
  Serious: Yes (Death, Hospitalization)
  Sender: FDA-Public Use
  Company Number: MY-MERCK-0711MYS00007

PATIENT
  Age: 52 Year
  Sex: Male
  Weight: 80 kg

DRUGS (6)
  1. PRIMAXIN [Suspect]
     Indication: NOSOCOMIAL INFECTION
     Route: 042
     Dates: start: 20071026, end: 20071027
  2. PRIMAXIN [Suspect]
     Route: 042
     Dates: start: 20071028, end: 20071029
  3. PRIMAXIN [Suspect]
     Route: 042
     Dates: start: 20071031
  4. ACYCLOVIR [Concomitant]
     Indication: PNEUMONITIS
     Route: 042
     Dates: start: 20071022, end: 20071028
  5. ACYCLOVIR [Concomitant]
     Route: 042
     Dates: start: 20071029, end: 20071029
  6. ACYCLOVIR [Concomitant]
     Route: 042
     Dates: start: 20071030, end: 20071030

REACTIONS (3)
  - ANAEMIA [None]
  - HYPERBILIRUBINAEMIA [None]
  - MULTI-ORGAN FAILURE [None]
